FAERS Safety Report 10772554 (Version 1)
Quarter: 2015Q1

REPORT INFORMATION
  Report Type: Other
  Country: US (occurrence: US)
  Receive Date: 20150207
  Receipt Date: 20150207
  Transmission Date: 20150721
  Serious: No
  Sender: FDA-Public Use
  Company Number: US-ACORDA-ACO_105853_2014

PATIENT
  Sex: Female

DRUGS (1)
  1. AMPYRA [Suspect]
     Active Substance: DALFAMPRIDINE
     Indication: MULTIPLE SCLEROSIS
     Dosage: 10 MG, BID
     Route: 048
     Dates: start: 201110

REACTIONS (8)
  - Therapeutic response unexpected [Unknown]
  - Memory impairment [Unknown]
  - Balance disorder [Unknown]
  - Muscle twitching [Unknown]
  - Drug dose omission [Unknown]
  - Muscle spasms [Unknown]
  - Gait disturbance [Unknown]
  - Confusional state [Unknown]
